FAERS Safety Report 25619234 (Version 1)
Quarter: 2025Q3

REPORT INFORMATION
  Report Type: Spontaneous
  Country: EU (occurrence: EU)
  Receive Date: 20250729
  Receipt Date: 20250729
  Transmission Date: 20251021
  Serious: Yes (Other)
  Sender: MYLAN
  Company Number: None

PATIENT
  Age: 71 Year
  Sex: Male
  Weight: 70 kg

DRUGS (4)
  1. LYRICA [Suspect]
     Active Substance: PREGABALIN
     Indication: Product used for unknown indication
     Dosage: 3 DOSAGE FORM, QD (INTAKE OF 3 CAPSULES OF LYRICA 75MG ALL AT ONCE)
     Dates: start: 20250206, end: 20250206
  2. LYRICA [Suspect]
     Active Substance: PREGABALIN
     Dosage: 3 DOSAGE FORM, QD (INTAKE OF 3 CAPSULES OF LYRICA 75MG ALL AT ONCE)
     Route: 048
     Dates: start: 20250206, end: 20250206
  3. LYRICA [Suspect]
     Active Substance: PREGABALIN
     Dosage: 3 DOSAGE FORM, QD (INTAKE OF 3 CAPSULES OF LYRICA 75MG ALL AT ONCE)
     Route: 048
     Dates: start: 20250206, end: 20250206
  4. LYRICA [Suspect]
     Active Substance: PREGABALIN
     Dosage: 3 DOSAGE FORM, QD (INTAKE OF 3 CAPSULES OF LYRICA 75MG ALL AT ONCE)
     Dates: start: 20250206, end: 20250206

REACTIONS (2)
  - Drug use disorder [Unknown]
  - Asthenia [Recovered/Resolved]

NARRATIVE: CASE EVENT DATE: 20250206
